FAERS Safety Report 6899873-2 (Version None)
Quarter: 2010Q3

REPORT INFORMATION
  Report Type: 
  Country: None (occurrence: None)
  Receive Date: 20100803
  Receipt Date: 20070529
  Transmission Date: 20110219
  Serious: Yes (Other)
  Sender: FDA-Public Use
  Company Number: US-PFIZER INC-2006155898

PATIENT
  Age: 60 Year
  Sex: Female
  Weight: 72.6 kg

DRUGS (8)
  1. LYRICA [Suspect]
     Indication: FIBROMYALGIA
     Dates: start: 20061012, end: 20070315
  2. ATENOLOL [Concomitant]
     Indication: HEART RATE INCREASED
  3. OMEPRAZOLE [Concomitant]
     Indication: DYSPEPSIA
  4. FIBERCON [Concomitant]
     Indication: CONSTIPATION
  5. STOOL SOFTENER [Concomitant]
     Indication: CONSTIPATION
  6. BENADRYL [Concomitant]
     Indication: SLEEP DISORDER
  7. UNISOM [Concomitant]
     Indication: SLEEP DISORDER
  8. ADVIL LIQUI-GELS [Concomitant]

REACTIONS (16)
  - ABDOMINAL DISTENSION [None]
  - BACK PAIN [None]
  - BURNING SENSATION [None]
  - CONSTIPATION [None]
  - DYSPNOEA [None]
  - FATIGUE [None]
  - FIBROMYALGIA [None]
  - HOT FLUSH [None]
  - HYPOAESTHESIA [None]
  - IRRITABLE BOWEL SYNDROME [None]
  - OEDEMA PERIPHERAL [None]
  - PAIN IN EXTREMITY [None]
  - PARAESTHESIA [None]
  - VERTIGO POSITIONAL [None]
  - VISION BLURRED [None]
  - WEIGHT FLUCTUATION [None]
